FAERS Safety Report 23422033 (Version 1)
Quarter: 2024Q1

REPORT INFORMATION
  Report Type: Spontaneous
  Country: US (occurrence: None)
  Receive Date: 20240118
  Receipt Date: 20240118
  Transmission Date: 20240410
  Serious: Yes (Other)
  Sender: FDA-Public Use
  Company Number: None

PATIENT
  Age: 67 Year
  Sex: Female
  Weight: 51.75 kg

DRUGS (10)
  1. KETAMINE [Suspect]
     Active Substance: KETAMINE
     Indication: Anaesthesia
     Route: 042
  2. VERSED [Suspect]
     Active Substance: MIDAZOLAM HYDROCHLORIDE
  3. PANTOPRAZOLE SODIUM [Concomitant]
     Active Substance: PANTOPRAZOLE SODIUM
  4. LOSARTAN [Concomitant]
     Active Substance: LOSARTAN
  5. TRAMADOL [Concomitant]
     Active Substance: TRAMADOL\TRAMADOL HYDROCHLORIDE
  6. STOOL SOFTENER (DOCUSATE) [Concomitant]
     Active Substance: DOCUSATE
  7. VITAMINS [Concomitant]
     Active Substance: VITAMINS
  8. VITAMIN D3 [Concomitant]
     Active Substance: CHOLECALCIFEROL
  9. VITAMIN B12 [Concomitant]
     Active Substance: CYANOCOBALAMIN
  10. FOLATE SODIUM [Concomitant]
     Active Substance: FOLATE SODIUM

REACTIONS (14)
  - Respiratory arrest [None]
  - Dysphonia [None]
  - Amnesia [None]
  - Aphasia [None]
  - Cognitive disorder [None]
  - Hallucination [None]
  - Nightmare [None]
  - Anxiety [None]
  - Dyspnoea [None]
  - Dyspnoea [None]
  - Agitation [None]
  - Crying [None]
  - Feeling abnormal [None]
  - Anaesthetic complication [None]

NARRATIVE: CASE EVENT DATE: 20231128
